FAERS Safety Report 6915048-2 (Version None)
Quarter: 2010Q3

REPORT INFORMATION
  Report Type: 
  Country: None (occurrence: None)
  Receive Date: 20100809
  Receipt Date: 20100728
  Transmission Date: 20110219
  Serious: Yes (Other)
  Sender: FDA-Public Use
  Company Number: US-BAYER-201027697NA

PATIENT
  Age: 63 Year
  Sex: Female

DRUGS (9)
  1. BETASERON [Suspect]
     Indication: MULTIPLE SCLEROSIS
     Dosage: TOTAL DAILY DOSE: 2 MIU
     Route: 058
     Dates: start: 20100708
  2. BETASERON [Suspect]
     Dosage: BETAJECT
     Route: 058
     Dates: start: 20100715
  3. BETASERON [Suspect]
     Dosage: TOTAL DAILY DOSE: 2 MIU
     Route: 058
     Dates: start: 20100701
  4. OXYCONTIN [Concomitant]
     Indication: MYALGIA
  5. DILANTIN [Concomitant]
     Indication: MUSCLE SPASMS
  6. PREDNISONE [Concomitant]
  7. LORZAPAN [Concomitant]
  8. LASIX [Concomitant]
  9. NORVASC [Concomitant]
     Dates: start: 20100201

REACTIONS (5)
  - DYSPNOEA [None]
  - FLUID RETENTION [None]
  - INCOHERENT [None]
  - MUSCULAR WEAKNESS [None]
  - PAIN [None]
